FAERS Safety Report 6945937-4 (Version None)
Quarter: 2010Q3

REPORT INFORMATION
  Report Type: 
  Country: None (occurrence: None)
  Receive Date: 20100824
  Receipt Date: 20100817
  Transmission Date: 20110219
  Serious: Yes (Hospitalization)
  Sender: FDA-Public Use
  Company Number: 2010SP041914

PATIENT
  Age: 74 Year
  Sex: Female

DRUGS (10)
  1. MIRTAZAPINE [Suspect]
     Indication: PAIN
     Dosage: 15 MG;HS;PO; 30 MG;HS;PO
     Route: 048
     Dates: start: 20100601, end: 20100614
  2. MIRTAZAPINE [Suspect]
     Indication: PAIN
     Dosage: 15 MG;HS;PO; 30 MG;HS;PO
     Route: 048
     Dates: start: 20100615, end: 20100716
  3. TOLEDOMIN (MILNACIPRAN HYDROCHLORIDE) [Suspect]
     Indication: PRODUCT USED FOR UNKNOWN INDICATION
     Dosage: 25 MG;BID;PO; 50 MG; BID;PO
     Route: 048
     Dates: start: 20100518, end: 20100524
  4. TOLEDOMIN (MILNACIPRAN HYDROCHLORIDE) [Suspect]
     Indication: PRODUCT USED FOR UNKNOWN INDICATION
     Dosage: 25 MG;BID;PO; 50 MG; BID;PO
     Route: 048
     Dates: start: 20100525, end: 20100716
  5. RISPERIDONE [Concomitant]
  6. ETIZOLAM [Concomitant]
  7. RABEPRAZOLE SODIUM [Concomitant]
  8. MAGNESIUM OXIDE [Concomitant]
  9. MOSAPRIDE CITRATE [Concomitant]
  10. BROTIZOLAM [Concomitant]

REACTIONS (2)
  - ADVERSE DRUG REACTION [None]
  - RHABDOMYOLYSIS [None]
